FAERS Safety Report 11729295 (Version 1)
Quarter: 2015Q4

REPORT INFORMATION
  Report Type: Spontaneous
  Country: US (occurrence: US)
  Receive Date: 20151110
  Receipt Date: 20151110
  Transmission Date: 20160304
  Serious: Yes (Other)
  Sender: FDA-Public Use
  Company Number: US-ELI_LILLY_AND_COMPANY-US201111006386

PATIENT
  Age: 62 Year
  Sex: Female

DRUGS (1)
  1. FORTEO [Suspect]
     Active Substance: TERIPARATIDE
     Indication: OSTEOPOROSIS
     Dosage: 20 UG, QD
     Route: 065
     Dates: start: 201109, end: 201109

REACTIONS (6)
  - Dyspnoea [Unknown]
  - Headache [Unknown]
  - Tremor [Unknown]
  - Pain in extremity [Unknown]
  - Syncope [Unknown]
  - Throat tightness [Unknown]

NARRATIVE: CASE EVENT DATE: 201109
